FAERS Safety Report 15905865 (Version 1)
Quarter: 2019Q1

REPORT INFORMATION
  Report Type: Spontaneous
  Country: US (occurrence: US)
  Receive Date: 20190202
  Receipt Date: 20190202
  Transmission Date: 20190417
  Serious: Yes (Disabling)
  Sender: FDA-Public Use
  Company Number: None

PATIENT
  Age: 35 Year
  Sex: Male
  Weight: 83.7 kg

DRUGS (8)
  1. ALLEGRA [Concomitant]
     Active Substance: FEXOFENADINE HYDROCHLORIDE
  2. SINGULARE [Concomitant]
  3. LIPITOR [Concomitant]
     Active Substance: ATORVASTATIN CALCIUM
  4. MEFLOQUINE [Suspect]
     Active Substance: MEFLOQUINE
     Indication: MALARIA
     Dosage: ?          OTHER FREQUENCY:ONCE PER WEEK;?
     Route: 048
  5. VALTREX [Concomitant]
     Active Substance: VALACYCLOVIR HYDROCHLORIDE
  6. MOBIC [Concomitant]
     Active Substance: MELOXICAM
  7. DAILY MULTI [Concomitant]
  8. FISH OIL/OMEGA 3 [Concomitant]

REACTIONS (5)
  - Performance status decreased [None]
  - Therapy cessation [None]
  - Tinnitus [None]
  - Disturbance in attention [None]
  - Vertigo [None]

NARRATIVE: CASE EVENT DATE: 20150115
